FAERS Safety Report 10272544 (Version 1)
Quarter: 2014Q2

REPORT INFORMATION
  Report Type: Spontaneous
  Country: US (occurrence: None)
  Receive Date: 20140627
  Receipt Date: 20140627
  Transmission Date: 20141212
  Serious: No
  Sender: FDA-Public Use
  Company Number: C-14-063

PATIENT
  Sex: Female

DRUGS (1)
  1. OXYCODONE [Suspect]
     Indication: PAIN MANAGEMENT

REACTIONS (2)
  - Product quality issue [None]
  - Drug ineffective [None]
